FAERS Safety Report 7495785-4 (Version None)
Quarter: 2011Q2

REPORT INFORMATION
  Report Type: 
  Country: None (occurrence: None)
  Receive Date: 20110523
  Receipt Date: 20110509
  Transmission Date: 20111010
  Serious: Yes (Other)
  Sender: FDA-Public Use
  Company Number: US-ELI_LILLY_AND_COMPANY-US201105002484

PATIENT
  Sex: Female

DRUGS (2)
  1. CYMBALTA [Suspect]
     Indication: FIBROMYALGIA
     Dosage: UNK, QD
     Route: 065
  2. LYRICA [Concomitant]
     Dosage: UNK, UNKNOWN
     Route: 065

REACTIONS (14)
  - WEIGHT INCREASED [None]
  - OVERDOSE [None]
  - DIABETES MELLITUS INADEQUATE CONTROL [None]
  - CRYING [None]
  - GAIT DISTURBANCE [None]
  - ARTHROPATHY [None]
  - FATIGUE [None]
  - FEELING ABNORMAL [None]
  - DEPRESSION [None]
  - OEDEMA PERIPHERAL [None]
  - FALL [None]
  - DIZZINESS [None]
  - GLYCOSYLATED HAEMOGLOBIN INCREASED [None]
  - PAIN [None]
